FAERS Safety Report 6936858-1 (Version None)
Quarter: 2010Q3

REPORT INFORMATION
  Report Type: 
  Country: None (occurrence: None)
  Receive Date: 20100823
  Receipt Date: 20100813
  Transmission Date: 20110219
  Serious: Yes (Hospitalization, Other)
  Sender: FDA-Public Use
  Company Number: AU-BRISTOL-MYERS SQUIBB COMPANY-15136666

PATIENT
  Age: 60 Year
  Sex: Male

DRUGS (9)
  1. EFAVIRENZ [Suspect]
     Indication: HIV INFECTION
  2. COTRIM [Suspect]
     Indication: ANTI-INFECTIVE THERAPY
  3. ZIDOVUDINE [Suspect]
     Indication: HIV INFECTION
  4. LAMIVUDINE [Suspect]
     Indication: HIV INFECTION
  5. LOPINAVIR/RITONAVIR [Suspect]
     Indication: HIV INFECTION
  6. AZITHROMYCIN [Suspect]
     Indication: ANTI-INFECTIVE THERAPY
  7. FLUCONAZOLE [Suspect]
     Indication: ANTI-INFECTIVE THERAPY
  8. RITONAVIR [Suspect]
  9. TENOFOVIR DISOPROXIL FUMARATE [Suspect]

REACTIONS (5)
  - APLASIA PURE RED CELL [None]
  - ENCEPHALOPATHY [None]
  - IMMUNE RECONSTITUTION SYNDROME [None]
  - INAPPROPRIATE ANTIDIURETIC HORMONE SECRETION [None]
  - PANCYTOPENIA [None]
